FAERS Safety Report 12083573 (Version 1)
Quarter: 2016Q1

REPORT INFORMATION
  Report Type: Spontaneous
  Country: US (occurrence: US)
  Receive Date: 20160217
  Receipt Date: 20160217
  Transmission Date: 20160526
  Serious: No
  Sender: FDA-Public Use
  Company Number: US-MYLANLABS-2015M1044999

PATIENT
  Age: 45 Year
  Sex: Female
  Weight: 102.4 kg

DRUGS (1)
  1. EPIPEN JR [Suspect]
     Active Substance: EPINEPHRINE
     Dosage: 0.15 MG, UNK
     Dates: start: 20151211, end: 20151211

REACTIONS (7)
  - Injection site swelling [Recovered/Resolved]
  - Heart rate increased [Recovered/Resolved]
  - Injection site paraesthesia [Recovered/Resolved]
  - Expired product administered [Recovered/Resolved]
  - Injection site hypoaesthesia [Recovered/Resolved]
  - Injection site pain [Not Recovered/Not Resolved]
  - Accidental exposure to product [Recovered/Resolved]

NARRATIVE: CASE EVENT DATE: 20151211
